FAERS Safety Report 7476096-X (Version None)
Quarter: 2011Q2

REPORT INFORMATION
  Report Type: 
  Country: None (occurrence: None)
  Receive Date: 20110512
  Receipt Date: 20110428
  Transmission Date: 20111010
  Serious: Yes (Hospitalization)
  Sender: FDA-Public Use
  Company Number: FR-PFIZER INC-2011100713

PATIENT
  Age: 27 Year
  Sex: Male

DRUGS (2)
  1. ATARAX [Suspect]
     Indication: BIPOLAR DISORDER
     Dosage: 150 MG, 1X/DAY
     Route: 048
     Dates: end: 20110314
  2. ABILIFY [Suspect]
     Indication: BIPOLAR DISORDER
     Dosage: 5 MG, 1X/DAY
     Route: 048
     Dates: start: 20110210, end: 20110314

REACTIONS (1)
  - TOXIC SKIN ERUPTION [None]
